FAERS Safety Report 6140481-9 (Version None)
Quarter: 2009Q1

REPORT INFORMATION
  Report Type: 
  Country: None (occurrence: None)
  Receive Date: 20090331
  Receipt Date: 20090320
  Transmission Date: 20090719
  Serious: Yes (Other)
  Sender: FDA-Public Use
  Company Number: 2009SP006384

PATIENT
  Age: 17 Year
  Sex: Female
  Weight: 57.1532 kg

DRUGS (6)
  1. MIRALAX [Suspect]
     Indication: CONSTIPATION
     Dosage: PO
     Route: 048
  2. PEPCID AC [Concomitant]
  3. PROTONIX [Concomitant]
  4. BIRTH CONTROL [Concomitant]
  5. INHALER [Concomitant]
  6. ANTIBIOTICS [Concomitant]

REACTIONS (12)
  - ABNORMAL FAECES [None]
  - BACK PAIN [None]
  - BLOOD POTASSIUM DECREASED [None]
  - BLOOD PRESSURE DECREASED [None]
  - FAECES DISCOLOURED [None]
  - FALL [None]
  - HYPOAESTHESIA [None]
  - MALAISE [None]
  - MUSCLE SPASMS [None]
  - MUSCULOSKELETAL PAIN [None]
  - NAUSEA [None]
  - PAIN IN EXTREMITY [None]
